FAERS Safety Report 10594670 (Version 2)
Quarter: 2017Q2

REPORT INFORMATION
  Report Type: Report from Study
  Country: DE (occurrence: DE)
  Receive Date: 20141120
  Receipt Date: 20170403
  Transmission Date: 20170829
  Serious: Yes (Hospitalization, Other)
  Sender: FDA-Public Use
  Company Number: DE-ROCHE-1490698

PATIENT
  Age: 46 Year
  Sex: Male

DRUGS (8)
  1. METHOTREXATE. [Suspect]
     Active Substance: METHOTREXATE
     Indication: POST TRANSPLANT LYMPHOPROLIFERATIVE DISORDER
     Dosage: 2ND CYCLE
     Route: 042
     Dates: start: 20100614
  2. RITUXIMAB [Suspect]
     Active Substance: RITUXIMAB
     Dosage: 5TH CYCLE
     Route: 042
     Dates: start: 20100916
  3. RITUXIMAB [Suspect]
     Active Substance: RITUXIMAB
     Indication: POST TRANSPLANT LYMPHOPROLIFERATIVE DISORDER
     Dosage: 4TH CYCLE
     Route: 042
     Dates: start: 20100804
  4. RITUXIMAB [Suspect]
     Active Substance: RITUXIMAB
     Dosage: 2ND CYCLE, LAST DOSE PRIOR TO SERIOUS ADVERSE EVENT
     Route: 042
     Dates: start: 20100614
  5. CYTARABIN [Concomitant]
     Active Substance: CYTARABINE
     Indication: POST TRANSPLANT LYMPHOPROLIFERATIVE DISORDER
     Dosage: 4TH CYCLE
     Route: 042
     Dates: start: 20100804
  6. THIOTEPA. [Concomitant]
     Active Substance: THIOTEPA
     Dosage: 5TH CYCLE
     Route: 042
     Dates: start: 20100916
  7. THIOTEPA. [Concomitant]
     Active Substance: THIOTEPA
     Indication: POST TRANSPLANT LYMPHOPROLIFERATIVE DISORDER
     Dosage: 4TH CYCLE
     Route: 042
     Dates: start: 20100804
  8. BICNU [Concomitant]
     Active Substance: CARMUSTINE
     Indication: POST TRANSPLANT LYMPHOPROLIFERATIVE DISORDER
     Dosage: 5TH CYCLE
     Route: 042
     Dates: start: 20100916

REACTIONS (8)
  - Myocardial ischaemia [Recovered/Resolved]
  - White blood cell count decreased [Unknown]
  - Platelet count decreased [Unknown]
  - Stomatitis [Recovered/Resolved]
  - Diarrhoea [Recovered/Resolved]
  - Sepsis [Recovered/Resolved]
  - Mucosal inflammation [Recovered/Resolved]
  - Pneumonia [Recovered/Resolved]

NARRATIVE: CASE EVENT DATE: 20100707
